FAERS Safety Report 13011398 (Version 1)
Quarter: 2016Q4

REPORT INFORMATION
  Report Type: Report from Study
  Country: US (occurrence: US)
  Receive Date: 20161209
  Receipt Date: 20161209
  Transmission Date: 20170207
  Serious: Yes (Other)
  Sender: FDA-Public Use
  Company Number: US-ROCHE-1864355

PATIENT
  Age: 85 Year

DRUGS (1)
  1. AVASTIN [Suspect]
     Active Substance: BEVACIZUMAB
     Indication: CORNEAL NEOVASCULARISATION
     Route: 042

REACTIONS (2)
  - Dry age-related macular degeneration [Unknown]
  - Off label use [Unknown]
